FAERS Safety Report 24569079 (Version 1)
Quarter: 2024Q4

REPORT INFORMATION
  Report Type: Spontaneous
  Country: US (occurrence: None)
  Receive Date: 20241030
  Receipt Date: 20241030
  Transmission Date: 20250115
  Serious: Yes (Hospitalization)
  Sender: Public
  Company Number: None

PATIENT
  Sex: Male

DRUGS (1)
  1. PULMOZYME [Suspect]
     Active Substance: DORNASE ALFA
     Indication: Lung transplant
     Dosage: FREQUENCY : DAILY;?
     Route: 055
     Dates: start: 202410

REACTIONS (2)
  - Stent placement [None]
  - Dyspnoea [None]
